FAERS Safety Report 10016288 (Version 1)
Quarter: 2014Q1

REPORT INFORMATION
  Report Type: Spontaneous
  Country: US (occurrence: US)
  Receive Date: 20140317
  Receipt Date: 20140317
  Transmission Date: 20141002
  Serious: Yes (Other)
  Sender: FDA-Public Use
  Company Number: US-PFIZER INC-2014072018

PATIENT
  Age: 50 Year
  Sex: Female
  Weight: 70.3 kg

DRUGS (1)
  1. PROVERA [Suspect]
     Indication: ENDOMETRIAL HYPERPLASIA
     Dosage: 10 MG, DAILY
     Dates: start: 20140215, end: 20140224

REACTIONS (3)
  - Hypertension [Not Recovered/Not Resolved]
  - Heart rate increased [Not Recovered/Not Resolved]
  - Rash generalised [Recovering/Resolving]
